FAERS Safety Report 25003694 (Version 1)
Quarter: 2025Q1

REPORT INFORMATION
  Report Type: Spontaneous
  Country: US (occurrence: US)
  Receive Date: 20250224
  Receipt Date: 20250224
  Transmission Date: 20250409
  Serious: Yes (Hospitalization, Other)
  Sender: EXELIXIS
  Company Number: US-EXELIXIS-EXL-2025-005136

PATIENT
  Age: 83 Year
  Sex: Female

DRUGS (2)
  1. CABOMETYX [Suspect]
     Active Substance: CABOZANTINIB S-MALATE
     Indication: Renal cell carcinoma
     Dosage: 40 MG, QD
     Route: 048
     Dates: start: 202412
  2. CABOMETYX [Suspect]
     Active Substance: CABOZANTINIB S-MALATE
     Indication: Gastrointestinal carcinoma
     Dosage: THREE TO FOUR 40MG CABOMETYX TABLETS, QD
     Route: 048

REACTIONS (6)
  - Hospitalisation [Unknown]
  - Renal failure [Unknown]
  - Pain in extremity [Unknown]
  - Hypertransaminasaemia [Unknown]
  - Confusional state [Unknown]
  - Overdose [Unknown]
